FAERS Safety Report 6056936-1 (Version None)
Quarter: 2009Q1

REPORT INFORMATION
  Report Type: 
  Country: None (occurrence: None)
  Receive Date: 20090126
  Receipt Date: 20090107
  Transmission Date: 20090719
  Serious: Yes (Death)
  Sender: FDA-Public Use
  Company Number: B0553667A

PATIENT
  Age: 16 Month
  Sex: Male

DRUGS (1)
  1. BUPROPION HYDROCHLORIDE [Suspect]
     Dosage: 150 MG/ORAL
     Route: 048

REACTIONS (5)
  - ACCIDENTAL EXPOSURE [None]
  - CARDIO-RESPIRATORY ARREST [None]
  - CONVULSION [None]
  - DRUG TOXICITY [None]
  - UNRESPONSIVE TO STIMULI [None]
